FAERS Safety Report 5903004-2 (Version None)
Quarter: 2008Q3

REPORT INFORMATION
  Report Type: 
  Country: None (occurrence: None)
  Receive Date: 20080930
  Receipt Date: 20080805
  Transmission Date: 20090109
  Serious: No
  Sender: FDA-Public Use
  Company Number: US-BAYER-200830504NA

PATIENT
  Age: 50 Year
  Sex: Female
  Weight: 64 kg

DRUGS (1)
  1. YASMIN [Suspect]
     Indication: PREMENSTRUAL SYNDROME
     Route: 048
     Dates: start: 20080101, end: 20080601

REACTIONS (5)
  - ABDOMINAL DISTENSION [None]
  - MENSTRUATION DELAYED [None]
  - MOOD SWINGS [None]
  - PREMENSTRUAL SYNDROME [None]
  - WEIGHT INCREASED [None]
